FAERS Safety Report 9254438 (Version 1)
Quarter: 2013Q2

REPORT INFORMATION
  Report Type: Spontaneous
  Country: US (occurrence: None)
  Receive Date: 20130422
  Receipt Date: 20130422
  Transmission Date: 20140414
  Serious: Yes (Other)
  Sender: FDA-Public Use
  Company Number: ACO_35554_2013

PATIENT
  Sex: Male
  Weight: 81.6 kg

DRUGS (4)
  1. AMPYRA [Suspect]
     Indication: GAIT DISTURBANCE
     Dosage: 10NGM Q 12HRS
     Dates: end: 2010
  2. REQUIP (ROPINIROLE HYDROCHLORIDE) TABLET [Concomitant]
  3. TRAZODONE (TRAZODONE) TABLET [Concomitant]
  4. ADDERALL (AMFETAMINE ASPARTATE, AMFETAMINE SULFATE, DEXAMFETAMINE SACCHARATE, DEXAMFETAMINE SULFATE) TABLET [Concomitant]

REACTIONS (2)
  - Dysuria [None]
  - Urinary retention [None]
